FAERS Safety Report 6666131-0 (Version None)
Quarter: 2010Q2

REPORT INFORMATION
  Report Type: 
  Country: None (occurrence: None)
  Receive Date: 20100402
  Receipt Date: 20100329
  Transmission Date: 20101027
  Serious: Yes (Life-Threatening, Hospitalization, Other)
  Sender: FDA-Public Use
  Company Number: PHHY2010NO18513

PATIENT
  Sex: Male

DRUGS (7)
  1. VOLTAREN [Suspect]
     Indication: PAIN
     Dosage: 200 MG PER DAY
     Route: 048
     Dates: start: 20100128, end: 20100204
  2. PINEX FORTE [Interacting]
     Indication: PAIN
     Dosage: 10 G PER DAY
     Route: 048
     Dates: start: 20100126, end: 20100204
  3. PARALGIN FORTE [Interacting]
     Indication: PAIN
     Dosage: UNK
     Route: 048
     Dates: start: 20100126, end: 20100204
  4. PARACET [Interacting]
     Indication: PAIN
     Dosage: 4
     Route: 048
     Dates: start: 20100101, end: 20100204
  5. IBUX [Interacting]
     Indication: PAIN
     Dosage: 1800 MG/DAY
     Route: 048
     Dates: start: 20100128, end: 20100204
  6. PINEX [Interacting]
     Indication: PAIN
     Dosage: UNK
     Route: 048
     Dates: start: 20100126, end: 20100204
  7. LEVOTHYROXINE SODIUM [Concomitant]
     Indication: HYPOTHYROIDISM
     Dosage: 200 ?G AND 100 ?G EVERY OTHER DAY
     Route: 048
     Dates: start: 19950101

REACTIONS (13)
  - ABDOMINAL PAIN [None]
  - CARDIAC VALVE VEGETATION [None]
  - CHOLESTASIS [None]
  - DRUG INTERACTION [None]
  - ENDOCARDITIS [None]
  - FAECES DISCOLOURED [None]
  - HEPATOTOXICITY [None]
  - JAUNDICE [None]
  - OEDEMA PERIPHERAL [None]
  - OLIGURIA [None]
  - RENAL FAILURE ACUTE [None]
  - SEPSIS [None]
  - URINE COLOUR ABNORMAL [None]
